FAERS Safety Report 24831113 (Version 2)
Quarter: 2025Q1

REPORT INFORMATION
  Report Type: Report from Study
  Country: US (occurrence: US)
  Receive Date: 20250110
  Receipt Date: 20250120
  Transmission Date: 20250408
  Serious: Yes (Other)
  Sender: GILEAD
  Company Number: US-GILEAD-2025-0699401

PATIENT
  Sex: Female

DRUGS (3)
  1. AMBRISENTAN [Suspect]
     Active Substance: AMBRISENTAN
     Indication: Pulmonary hypertension
     Dosage: 10 MG, QD
     Route: 065
     Dates: start: 20230321
  2. ADEMPAS [Concomitant]
     Active Substance: RIOCIGUAT
  3. AMILORIDE [Concomitant]
     Active Substance: AMILORIDE
     Indication: Product used for unknown indication
     Route: 065

REACTIONS (17)
  - Pulmonary oedema [Unknown]
  - Lower respiratory tract congestion [Unknown]
  - Blood potassium decreased [Unknown]
  - Hypoaesthesia [Unknown]
  - Paraesthesia [Unknown]
  - Hypoaesthesia oral [Unknown]
  - Paraesthesia oral [Unknown]
  - Breast mass [Unknown]
  - Intra-abdominal fluid collection [Unknown]
  - Condition aggravated [Unknown]
  - Chest discomfort [Unknown]
  - Weight fluctuation [Unknown]
  - Abdominal discomfort [Unknown]
  - Fatigue [Unknown]
  - Dyspnoea [Unknown]
  - Dizziness [Unknown]
  - Asthenia [Unknown]
